FAERS Safety Report 18780447 (Version 2)
Quarter: 2021Q2

REPORT INFORMATION
  Report Type: Spontaneous
  Country: CA (occurrence: CA)
  Receive Date: 20210125
  Receipt Date: 20210421
  Transmission Date: 20210717
  Serious: Yes (Other)
  Sender: FDA-Public Use
  Company Number: CA-PFIZER INC-2019223081

PATIENT
  Age: 21 Year
  Sex: Male

DRUGS (10)
  1. XELJANZ [Suspect]
     Active Substance: TOFACITINIB CITRATE
     Dosage: 5 MG, 2X/DAY
     Route: 048
     Dates: start: 20190813, end: 202012
  2. XELJANZ [Suspect]
     Active Substance: TOFACITINIB CITRATE
     Dosage: 5 MG, 2X/DAY
     Route: 048
     Dates: start: 202012
  3. XELJANZ [Suspect]
     Active Substance: TOFACITINIB CITRATE
     Dosage: 10 MG, 2X/DAY
  4. TYLENOL [Concomitant]
     Active Substance: ACETAMINOPHEN
     Dosage: 1000 MG, UNK
     Route: 065
     Dates: start: 201905
  5. XELJANZ [Suspect]
     Active Substance: TOFACITINIB CITRATE
     Dosage: 10 MG, 2X/DAY
     Route: 048
     Dates: start: 20190523, end: 20190523
  6. MOMETASONE [Concomitant]
     Active Substance: MOMETASONE
     Dosage: UNK
     Route: 065
     Dates: start: 201905
  7. ASPIRIN. [Concomitant]
     Active Substance: ASPIRIN
     Dosage: UNK
     Route: 065
  8. XELJANZ [Suspect]
     Active Substance: TOFACITINIB CITRATE
     Indication: COLITIS ULCERATIVE
     Dosage: 10 MG, 2X/DAY
     Route: 048
     Dates: start: 20190515, end: 20190521
  9. XELJANZ [Suspect]
     Active Substance: TOFACITINIB CITRATE
     Dosage: 10 MG, 2X/DAY
     Route: 048
     Dates: start: 20190524, end: 202008
  10. CORTIMENT [BUDESONIDE] [Concomitant]
     Active Substance: BUDESONIDE
     Dosage: UNK
     Route: 065

REACTIONS (30)
  - Malaise [Not Recovered/Not Resolved]
  - Apathy [Unknown]
  - Post procedural infection [Recovering/Resolving]
  - Headache [Not Recovered/Not Resolved]
  - Gastrooesophageal reflux disease [Unknown]
  - Irregular sleep wake rhythm disorder [Recovering/Resolving]
  - Oropharyngeal discomfort [Recovered/Resolved]
  - Condition aggravated [Unknown]
  - Clostridium difficile infection [Recovering/Resolving]
  - Productive cough [Not Recovered/Not Resolved]
  - Rhinorrhoea [Not Recovered/Not Resolved]
  - Somnolence [Unknown]
  - Chest discomfort [Recovering/Resolving]
  - Oropharyngeal pain [Unknown]
  - Nasal congestion [Not Recovered/Not Resolved]
  - Depressed mood [Recovering/Resolving]
  - Vomiting [Not Recovered/Not Resolved]
  - Rash [Unknown]
  - Condition aggravated [Unknown]
  - Gastrointestinal sounds abnormal [Unknown]
  - Mental disorder [Recovering/Resolving]
  - Anxiety [Recovering/Resolving]
  - Fatigue [Recovering/Resolving]
  - Pneumonia [Unknown]
  - Haematochezia [Unknown]
  - Nasopharyngitis [Recovering/Resolving]
  - Sneezing [Not Recovered/Not Resolved]
  - Pyrexia [Unknown]
  - Weight increased [Unknown]
  - Stress [Unknown]

NARRATIVE: CASE EVENT DATE: 20190521
